FAERS Safety Report 9305550 (Version 4)
Quarter: 2013Q3

REPORT INFORMATION
  Report Type: Spontaneous
  Country: US (occurrence: None)
  Receive Date: 20130520
  Receipt Date: 20130816
  Transmission Date: 20140515
  Serious: Yes (Hospitalization, Other)
  Sender: FDA-Public Use
  Company Number: 2012-001699

PATIENT
  Age: 62 Year
  Sex: Female

DRUGS (14)
  1. ACTONEL [Suspect]
     Indication: OSTEOPOROSIS
     Route: 048
     Dates: start: 200605, end: 200803
  2. ACTONEL [Suspect]
     Indication: OSTEOPOROSIS PROPHYLAXIS
     Route: 048
     Dates: start: 200605, end: 200803
  3. ACTONEL [Suspect]
     Route: 048
     Dates: start: 200605, end: 200803
  4. FOSAMAX (ALENDRONATE SODIUM) [Suspect]
     Indication: OSTEOPOROSIS
     Route: 048
     Dates: start: 1998, end: 200605
  5. FOSAMAX (ALENDRONATE SODIUM) [Suspect]
     Route: 048
     Dates: start: 1998, end: 200605
  6. FOSAMAX (ALENDRONATE SODIUM) [Suspect]
     Route: 048
     Dates: start: 1998, end: 200605
  7. THEODUR (THEOPHYLLINE) [Concomitant]
  8. SINGULAIR [Concomitant]
  9. ADVAIR (FLUTICASONE PROPIONATE, SALMETEROL XINAFOATE) [Concomitant]
  10. PREVACID (LANSOPRAZOLE) [Concomitant]
  11. LEXAPRO (ESCITALOPRAM OXALATE) [Concomitant]
  12. NORVASC (AMLODIPINE BESILATE) [Concomitant]
  13. CALCIUM (CALCIUM) [Concomitant]
  14. VITAMIN D /00318501/ (COLECALCIFEROL) [Concomitant]

REACTIONS (9)
  - Femur fracture [None]
  - Fall [None]
  - Stress fracture [None]
  - Fracture displacement [None]
  - Limb discomfort [None]
  - Pathological fracture [None]
  - Low turnover osteopathy [None]
  - Bone disorder [None]
  - Pain [None]
